FAERS Safety Report 9995644 (Version 1)
Quarter: 2014Q1

REPORT INFORMATION
  Report Type: Spontaneous
  Country: US (occurrence: None)
  Receive Date: 20140307
  Receipt Date: 20140307
  Transmission Date: 20141002
  Serious: Yes (Death, Hospitalization, Disabling)
  Sender: FDA-Public Use
  Company Number: None

PATIENT
  Age: 78 Year
  Sex: Female
  Weight: 56.7 kg

DRUGS (1)
  1. NIZORAL [Suspect]
     Indication: ONYCHOMYCOSIS
     Dosage: 1 TABLET  ONCE DAILY TAKEN BY MOUTH?DURATION: MORE THAN 4 MONTHS
     Route: 048

REACTIONS (10)
  - Hepatitis [None]
  - Hepatic failure [None]
  - Ascites [None]
  - Hepatic encephalopathy [None]
  - Generalised oedema [None]
  - Renal failure [None]
  - Renal failure acute [None]
  - Hepatorenal syndrome [None]
  - Pleural effusion [None]
  - Coagulopathy [None]
